FAERS Safety Report 4765339-9 (Version None)
Quarter: 2005Q3

REPORT INFORMATION
  Report Type: 
  Country: None (occurrence: None)
  Receive Date: 20050909
  Receipt Date: 20050520
  Transmission Date: 20060218
  Serious: Yes (Death, Hospitalization, Other)
  Sender: FDA-Public Use
  Company Number: US-MERCK-0505USA02563

PATIENT
  Sex: Male
  Weight: 82 kg

DRUGS (4)
  1. VIOXX [Suspect]
     Indication: MONARTHRITIS
     Route: 048
     Dates: start: 20010115, end: 20020509
  2. VIOXX [Suspect]
     Route: 048
     Dates: start: 20010115, end: 20020509
  3. LASIX [Concomitant]
     Indication: OEDEMA
     Route: 065
  4. CEFTIN [Concomitant]
     Route: 065

REACTIONS (2)
  - CARDIAC FAILURE [None]
  - MYOCARDIAL INFARCTION [None]
